FAERS Safety Report 7807273-3 (Version None)
Quarter: 2011Q4

REPORT INFORMATION
  Report Type: 
  Country: None (occurrence: None)
  Receive Date: 20111011
  Receipt Date: 20111006
  Transmission Date: 20120403
  Serious: Yes (Other)
  Sender: FDA-Public Use
  Company Number: FI-PFIZER INC-2011238248

PATIENT
  Age: 60 Year
  Sex: Female

DRUGS (2)
  1. LYRICA [Suspect]
     Indication: BACK PAIN
     Dosage: 75 MG THREE TIMES A DAY
  2. TRAMADOL HCL [Suspect]
     Indication: BACK PAIN
     Dosage: UNK

REACTIONS (1)
  - NORMOCHROMIC NORMOCYTIC ANAEMIA [None]
